FAERS Safety Report 11153095 (Version 8)
Quarter: 2015Q3

REPORT INFORMATION
  Report Type: Spontaneous
  Country: US (occurrence: US)
  Receive Date: 20150601
  Receipt Date: 20150827
  Transmission Date: 20151125
  Serious: Yes (Hospitalization, Other)
  Sender: FDA-Public Use
  Company Number: US-UNITED THERAPEUTICS-UNT-2015-006277

PATIENT
  Age: 30 Year
  Sex: Female
  Weight: 92.52 kg

DRUGS (4)
  1. REMODULIN [Suspect]
     Active Substance: TREPROSTINIL
     Dosage: 0.055 ?G/KG, CONTINUING
     Route: 058
     Dates: start: 20150325
  2. COUMADIN [Concomitant]
     Active Substance: WARFARIN SODIUM
     Indication: PRODUCT USED FOR UNKNOWN INDICATION
  3. REMODULIN [Suspect]
     Active Substance: TREPROSTINIL
     Indication: PULMONARY ARTERIAL HYPERTENSION
     Dosage: 0.051 ?G/KG, CONTINUING
     Route: 058
     Dates: start: 20150114
  4. REMODULIN [Suspect]
     Active Substance: TREPROSTINIL
     Dosage: 0.060 ?G/KG, CONTINUING
     Route: 058

REACTIONS (14)
  - Infusion site vesicles [Unknown]
  - Drug dose omission [Unknown]
  - Infusion site reaction [Unknown]
  - Device dislocation [Recovered/Resolved]
  - Fatigue [Unknown]
  - Weight increased [Unknown]
  - Infusion site infection [Unknown]
  - Personality change [Unknown]
  - Burning sensation [Unknown]
  - Accidental overdose [Unknown]
  - Brain neoplasm [Unknown]
  - Liver disorder [Unknown]
  - Feeling drunk [Unknown]
  - Infusion site rash [Unknown]

NARRATIVE: CASE EVENT DATE: 2015
